FAERS Safety Report 4789356-8 (Version None)
Quarter: 2005Q3

REPORT INFORMATION
  Report Type: 
  Country: None (occurrence: None)
  Receive Date: 20050929
  Receipt Date: 20050601
  Transmission Date: 20060218
  Serious: No
  Sender: FDA-Public Use
  Company Number: 05P-163-0302041-00

PATIENT
  Age: 67 Year
  Sex: Female
  Weight: 43.9989 kg

DRUGS (4)
  1. HUMIRA [Suspect]
     Indication: RHEUMATOID ARTHRITIS
     Dosage: 40 MG,  1 IN 2 WK, SUBCUTANEOUS
     Route: 058
     Dates: start: 20040501, end: 20050518
  2. NIFEDIPINE [Concomitant]
  3. RANITIDINE HYDROCHLORIDE [Concomitant]
  4. SERTRALINE HYDROCHLORIDE [Concomitant]

REACTIONS (5)
  - ANOREXIA [None]
  - CHRONIC OBSTRUCTIVE PULMONARY DISEASE [None]
  - DYSGEUSIA [None]
  - DYSPNOEA [None]
  - EMPHYSEMA [None]
